FAERS Safety Report 6981860-7 (Version None)
Quarter: 2010Q3

REPORT INFORMATION
  Report Type: 
  Country: None (occurrence: None)
  Receive Date: 20100909
  Receipt Date: 20100902
  Transmission Date: 20110219
  Serious: Yes (Death, Hospitalization)
  Sender: FDA-Public Use
  Company Number: 017190

PATIENT
  Sex: Male
  Weight: 85 kg

DRUGS (4)
  1. CERTOLIZUMAB PEGOL (CERTOLIZUMAB PEGOL) [Suspect]
     Indication: CROHN'S DISEASE
     Dosage: 400 MG 1X/2 WEEKS SUBCUTANEOUS, (400 MG 1X MONTH SUBCUTANEOUS)
     Route: 058
     Dates: start: 20041025
  2. PURINETHOL [Concomitant]
  3. ENALAPRIL MALEATE [Concomitant]
  4. ACETAMINOPHEN [Concomitant]

REACTIONS (7)
  - ABDOMINAL PAIN [None]
  - ACUTE CORONARY SYNDROME [None]
  - BACK PAIN [None]
  - CHEST PAIN [None]
  - CONDITION AGGRAVATED [None]
  - HYPERTENSION [None]
  - RASH [None]
